FAERS Safety Report 11898634 (Version 4)
Quarter: 2016Q1

REPORT INFORMATION
  Report Type: Report from Study
  Country: RS (occurrence: RS)
  Receive Date: 20160108
  Receipt Date: 20160218
  Transmission Date: 20160526
  Serious: Yes (Hospitalization)
  Sender: FDA-Public Use
  Company Number: RS-BIOGEN-2016BI00168553

PATIENT
  Age: 52 Year
  Sex: Male
  Weight: 100 kg

DRUGS (9)
  1. BG00012 [Suspect]
     Active Substance: DIMETHYL FUMARATE
     Dates: start: 20160203
  2. VITAMIN D3 [Concomitant]
     Active Substance: CHOLECALCIFEROL
     Indication: MULTIPLE SCLEROSIS
     Route: 048
     Dates: start: 20130220
  3. BISOPROLOL [Concomitant]
     Active Substance: BISOPROLOL
  4. BG00012 [Suspect]
     Active Substance: DIMETHYL FUMARATE
     Indication: MULTIPLE SCLEROSIS
     Route: 048
     Dates: start: 20110712
  5. BISOPROLOL [Concomitant]
     Active Substance: BISOPROLOL
     Indication: HYPERTENSION
     Route: 048
     Dates: start: 20151215
  6. VITAMIN B12 [Concomitant]
     Active Substance: CYANOCOBALAMIN
     Indication: MULTIPLE SCLEROSIS
     Route: 048
     Dates: start: 20130220
  7. BG00012 [Suspect]
     Active Substance: DIMETHYL FUMARATE
     Route: 048
     Dates: start: 20150908, end: 20160104
  8. FOSINOPRIL AND HYDROCHLOROTHIAZIDE [Concomitant]
     Indication: HYPERTENSION
     Route: 048
     Dates: start: 20151215
  9. CARDIOPIRIN [Concomitant]
     Active Substance: ASPIRIN
     Indication: HYPERTENSION
     Route: 048
     Dates: start: 20151215

REACTIONS (1)
  - Myocardial infarction [Recovered/Resolved]

NARRATIVE: CASE EVENT DATE: 20160104
